FAERS Safety Report 20742201 (Version 1)
Quarter: 2022Q2

REPORT INFORMATION
  Report Type: Spontaneous
  Country: US (occurrence: US)
  Receive Date: 20220423
  Receipt Date: 20220423
  Transmission Date: 20220720
  Serious: No
  Sender: FDA-Public Use
  Company Number: US-JNJFOC-20220437061

PATIENT
  Age: 48 Year
  Sex: Female

DRUGS (1)
  1. STELARA [Suspect]
     Active Substance: USTEKINUMAB
     Indication: Crohn^s disease
     Route: 042
     Dates: start: 20220413

REACTIONS (4)
  - Urticaria [Recovered/Resolved]
  - Pruritus [Recovered/Resolved]
  - Dyspepsia [Recovered/Resolved]
  - Sensory disturbance [Recovered/Resolved]

NARRATIVE: CASE EVENT DATE: 20220413
